FAERS Safety Report 5321153-7 (Version None)
Quarter: 2007Q2

REPORT INFORMATION
  Report Type: 
  Country: None (occurrence: None)
  Receive Date: 20070504
  Receipt Date: 20070420
  Transmission Date: 20071010
  Serious: Yes (Other)
  Sender: FDA-Public Use
  Company Number: 8023330

PATIENT

DRUGS (1)
  1. KEPPRA [Suspect]
     Indication: CONVULSION PROPHYLAXIS

REACTIONS (2)
  - HYPERBILIRUBINAEMIA [None]
  - NEUTROPENIA [None]
